FAERS Safety Report 18309060 (Version 1)
Quarter: 2020Q3

REPORT INFORMATION
  Report Type: Spontaneous
  Country: US (occurrence: US)
  Receive Date: 20200925
  Receipt Date: 20200925
  Transmission Date: 20201103
  Serious: No
  Sender: FDA-Public Use
  Company Number: US-AUROBINDO-AUR-APL-2020-027933

PATIENT
  Age: 64 Year
  Sex: Female
  Weight: 69 kg

DRUGS (3)
  1. METOPROLOL SUCCINATE. [Concomitant]
     Active Substance: METOPROLOL SUCCINATE
     Indication: HYPERTENSION
     Dosage: 25 MILLIGRAM, ONCE A DAY
     Route: 065
  2. ALENDRONATE SODIUM TABLETS USP 70MG [Suspect]
     Active Substance: ALENDRONATE SODIUM
     Indication: OSTEOPENIA
     Dosage: 1 DOSAGE FORM, EVERY WEEK IN THE MORING ON SUNDAY WITHOUT FOOD
     Route: 065
     Dates: start: 20200314
  3. CELECOXIB. [Concomitant]
     Active Substance: CELECOXIB
     Indication: OSTEOARTHRITIS
     Dosage: 200 MILLIGRAM, ONCE A DAY
     Route: 065

REACTIONS (7)
  - Bone development abnormal [Unknown]
  - Exostosis of jaw [Unknown]
  - Bone lesion [Unknown]
  - Condition aggravated [Unknown]
  - Exostosis [Unknown]
  - Chest pain [Recovered/Resolved]
  - Calcinosis [Unknown]
